FAERS Safety Report 22229222 (Version 1)
Quarter: 2023Q2

REPORT INFORMATION
  Report Type: Spontaneous
  Country: US (occurrence: US)
  Receive Date: 20230419
  Receipt Date: 20230419
  Transmission Date: 20230722
  Serious: No
  Sender: FDA-Public Use
  Company Number: US-ALLERGAN-2211266US

PATIENT
  Age: 59 Year
  Sex: Female

DRUGS (6)
  1. RESTASIS [Suspect]
     Active Substance: CYCLOSPORINE
     Indication: Dry eye
     Dosage: 1 GTT, BID
  2. ASPIRIN [Concomitant]
     Active Substance: ASPIRIN
     Indication: Cardiac disorder
  3. Inflammation medicine [Concomitant]
     Indication: Back pain
     Dosage: UNK UNK, PRN
  4. Inflammation medicine [Concomitant]
     Indication: Spinal pain
  5. Inflammation medicine [Concomitant]
     Indication: Neuralgia
  6. AUGMENTIN [Concomitant]
     Active Substance: AMOXICILLIN\CLAVULANATE POTASSIUM

REACTIONS (12)
  - Memory impairment [Unknown]
  - Concussion [Unknown]
  - Malaise [Not Recovered/Not Resolved]
  - Condition aggravated [Not Recovered/Not Resolved]
  - Asthma [Not Recovered/Not Resolved]
  - Anger [Unknown]
  - Poor quality product administered [Unknown]
  - Eye irritation [Unknown]
  - Eye pruritus [Unknown]
  - Dyspnoea [Not Recovered/Not Resolved]
  - Product quality issue [Unknown]
  - Product physical consistency issue [Unknown]
